FAERS Safety Report 15098755 (Version 1)
Quarter: 2018Q3

REPORT INFORMATION
  Report Type: Report from Study
  Country: US (occurrence: US)
  Receive Date: 20180702
  Receipt Date: 20180702
  Transmission Date: 20181010
  Serious: Yes (Other)
  Sender: FDA-Public Use
  Company Number: US-JNJFOC-20180639579

PATIENT
  Age: 73 Year
  Sex: Female

DRUGS (14)
  1. SILYBUM MARIANUM [Concomitant]
     Active Substance: DIETARY SUPPLEMENT\HERBALS\MILK THISTLE
     Route: 065
  2. BIFIDOBACTERIUM LACTIS [Concomitant]
     Active Substance: BIFIDOBACTERIUM ANIMALIS LACTIS
  3. ARMOUR THYROID [Concomitant]
     Active Substance: THYROID, PORCINE
  4. VITAMIN B COMPLEX [Concomitant]
     Active Substance: CYANOCOBALAMIN\DEXPANTHENOL\NIACINAMIDE\PYRIDOXINE HYDROCHLORIDE\RIBOFLAVIN 5^-PHOSPHATE SODIUM\THIAMINE HYDROCHLORIDE\VITAMIN B COMPLEX
  5. CALCIUM [Concomitant]
     Active Substance: CALCIUM
  6. TUMS [Concomitant]
     Active Substance: CALCIUM CARBONATE
  7. IMBRUVICA [Suspect]
     Active Substance: IBRUTINIB
     Indication: CHRONIC LYMPHOCYTIC LEUKAEMIA
     Route: 048
     Dates: start: 20180331
  8. VITAMIN B12 [Concomitant]
     Active Substance: CYANOCOBALAMIN
  9. VITAMIN C [Concomitant]
     Active Substance: ASCORBIC ACID
  10. FOLIC ACID. [Concomitant]
     Active Substance: FOLIC ACID
  11. METOPROLOL TARTRATE. [Concomitant]
     Active Substance: METOPROLOL TARTRATE
  12. ECHINACEA [Concomitant]
     Active Substance: ECHINACEA, UNSPECIFIED
  13. MULTIVITAMINS [Concomitant]
     Active Substance: VITAMINS
  14. CLARITIN [Concomitant]
     Active Substance: LORATADINE

REACTIONS (4)
  - Haemorrhage [Unknown]
  - Incorrect dose administered [Unknown]
  - Off label use [Unknown]
  - Hypersensitivity [Unknown]

NARRATIVE: CASE EVENT DATE: 20180331
